FAERS Safety Report 13220390 (Version 1)
Quarter: 2017Q1

REPORT INFORMATION
  Report Type: Spontaneous
  Country: ES (occurrence: ES)
  Receive Date: 20170210
  Receipt Date: 20170210
  Transmission Date: 20170428
  Serious: Yes (Hospitalization)
  Sender: FDA-Public Use
  Company Number: ES-SCIEGEN PHARMACEUTICALS INC-2017SCILIT00072

PATIENT
  Age: 86 Year
  Sex: Male

DRUGS (2)
  1. GABAPENTIN CAPSULES [Suspect]
     Active Substance: GABAPENTIN
     Indication: PRODUCT USED FOR UNKNOWN INDICATION
     Dosage: UNK
     Route: 065
  2. RISPERIDONE. [Suspect]
     Active Substance: RISPERIDONE
     Indication: DELIRIUM
     Dosage: UNK
     Route: 065

REACTIONS (2)
  - Agranulocytosis [Recovered/Resolved]
  - Hypoalbuminaemia [Recovered/Resolved]
